FAERS Safety Report 6123474-7 (Version None)
Quarter: 2009Q1

REPORT INFORMATION
  Report Type: 
  Country: None (occurrence: None)
  Receive Date: 20090318
  Receipt Date: 20090130
  Transmission Date: 20090719
  Serious: Yes (Hospitalization)
  Sender: FDA-Public Use
  Company Number: US-B.I. PHARMACEUTICALS,INC./RIDGEFIELD-2009-BP-03243BP

PATIENT
  Sex: Male
  Weight: 95 kg

DRUGS (3)
  1. MIRAPEX [Suspect]
     Indication: PARKINSON'S DISEASE
     Dates: start: 19990101, end: 20080201
  2. NEURONTIN [Concomitant]
     Dates: start: 20061102
  3. SEROQUEL [Concomitant]
     Dates: start: 20061102

REACTIONS (8)
  - HYPERPHAGIA [None]
  - INSOMNIA [None]
  - MAJOR DEPRESSION [None]
  - OBSESSIVE-COMPULSIVE DISORDER [None]
  - OEDEMA PERIPHERAL [None]
  - OVERDOSE [None]
  - PATHOLOGICAL GAMBLING [None]
  - SUICIDE ATTEMPT [None]
